FAERS Safety Report 7574373-5 (Version None)
Quarter: 2011Q2

REPORT INFORMATION
  Report Type: 
  Country: None (occurrence: None)
  Receive Date: 20110627
  Receipt Date: 20110620
  Transmission Date: 20111010
  Serious: Yes (Other)
  Sender: FDA-Public Use
  Company Number: US-SANOFI-AVENTIS-2011SA034586

PATIENT
  Age: 42 Year

DRUGS (2)
  1. ELOXATIN [Suspect]
     Indication: ADJUVANT THERAPY
     Route: 065
  2. ELOXATIN [Suspect]
     Route: 065

REACTIONS (2)
  - FOCAL NODULAR HYPERPLASIA [None]
  - SPLENOMEGALY [None]
